FAERS Safety Report 6527742-6 (Version None)
Quarter: 2010Q1

REPORT INFORMATION
  Report Type: 
  Country: None (occurrence: None)
  Receive Date: 20100105
  Receipt Date: 20100105
  Transmission Date: 20100710
  Serious: No
  Sender: FDA-Public Use
  Company Number: None

PATIENT
  Age: 69 Year
  Sex: Female
  Weight: 86.1834 kg

DRUGS (1)
  1. CLONIDINE [Suspect]
     Indication: PAIN
     Dosage: 1 PATCH 1X WEEK TRANSDERM
     Route: 062
     Dates: start: 20061201, end: 20090901

REACTIONS (2)
  - PRODUCT ADHESION ISSUE [None]
  - PRODUCT SUBSTITUTION ISSUE [None]
